FAERS Safety Report 7788263-6 (Version None)
Quarter: 2011Q3

REPORT INFORMATION
  Report Type: 
  Country: None (occurrence: None)
  Receive Date: 20110930
  Receipt Date: 20110919
  Transmission Date: 20111222
  Serious: Yes (Hospitalization, Other)
  Sender: FDA-Public Use
  Company Number: US-ELI_LILLY_AND_COMPANY-US201006003640

PATIENT
  Sex: Female

DRUGS (2)
  1. FORTEO [Suspect]
     Dosage: 20 UG, QD
     Route: 058
  2. FORTEO [Suspect]
     Indication: OSTEOPOROSIS
     Dosage: 20 UG, DAILY (1/D)
     Route: 058
     Dates: start: 20091019

REACTIONS (7)
  - FEELING ABNORMAL [None]
  - DIZZINESS [None]
  - BLOOD MAGNESIUM DECREASED [None]
  - HEART RATE DECREASED [None]
  - STENT PLACEMENT [None]
  - FATIGUE [None]
  - CARDIAC PACEMAKER INSERTION [None]
